FAERS Safety Report 4948921-5 (Version None)
Quarter: 2006Q1

REPORT INFORMATION
  Report Type: 
  Country: None (occurrence: None)
  Receive Date: 20060316
  Receipt Date: 20060303
  Transmission Date: 20060701
  Serious: Yes (Hospitalization, Other)
  Sender: FDA-Public Use
  Company Number: 2005113325

PATIENT
  Age: 49 Year
  Sex: Female
  Weight: 58.9676 kg

DRUGS (21)
  1. GABAPENTIN [Suspect]
     Indication: NEURALGIA
     Dosage: 4400 MG (4 IN 1 D)
     Dates: start: 20020101
  2. GABAPENTIN [Suspect]
     Indication: RESTLESS LEGS SYNDROME
     Dosage: 4400 MG (4 IN 1 D)
     Dates: start: 20020101
  3. NEURONTIN [Suspect]
     Indication: NEURALGIA
     Dosage: 1200 MG (400 MG, 3 IN 1 D)
  4. NEURONTIN [Suspect]
     Indication: RESTLESS LEGS SYNDROME
     Dosage: 1200 MG (400 MG, 3 IN 1 D)
  5. LIDOCAINE [Suspect]
     Indication: ILL-DEFINED DISORDER
     Dates: start: 20050301
  6. GABAPENTIN [Suspect]
     Indication: ILL-DEFINED DISORDER
     Dosage: 400 MG (400 MG, TOOK ONE DOSE)
     Dates: start: 20050101
  7. PROVIGIL [Concomitant]
  8. FOSAMAX [Concomitant]
  9. MIACALCIN [Concomitant]
  10. CALCIUM WITH VITAMIN D (CALCIUM PHOSPHATE, CALCIUM SODIUM LACTATE, ERG [Concomitant]
  11. PANCRELIPASE [Concomitant]
  12. NEXIUM [Concomitant]
  13. MORPHINE SULFATE [Concomitant]
  14. ACETAMINOPHEN [Concomitant]
  15. XANAX [Concomitant]
  16. PROMETRIUM [Concomitant]
  17. ADVAIR DISKUS 100/50 [Concomitant]
  18. ALBUTEROL [Concomitant]
  19. SINGULAIR ^MERCK^ (MONTELUKAST SODIUM) [Concomitant]
  20. TESTOSTERONE [Concomitant]
  21. PROGESTERONE [Concomitant]

REACTIONS (16)
  - ANOREXIA [None]
  - BURNING SENSATION [None]
  - CHRONIC OBSTRUCTIVE PULMONARY DISEASE [None]
  - DIARRHOEA [None]
  - DYSGEUSIA [None]
  - DYSPEPSIA [None]
  - ECONOMIC PROBLEM [None]
  - EPISTAXIS [None]
  - ERYTHEMA [None]
  - FOOT FRACTURE [None]
  - NAUSEA [None]
  - PAIN IN EXTREMITY [None]
  - PNEUMOTHORAX [None]
  - RIB FRACTURE [None]
  - VOMITING [None]
  - WEIGHT DECREASED [None]
